FAERS Safety Report 9379597 (Version 10)
Quarter: 2015Q3

REPORT INFORMATION
  Report Type: Report from Study
  Country: CA (occurrence: CA)
  Receive Date: 20130702
  Receipt Date: 20150724
  Transmission Date: 20151125
  Serious: No
  Sender: FDA-Public Use
  Company Number: PHHY2013CA067416

PATIENT
  Sex: Female

DRUGS (5)
  1. EXJADE [Suspect]
     Active Substance: DEFERASIROX
     Dosage: 750 MG, QD
     Route: 048
  2. VITAMIN D [Concomitant]
     Active Substance: CHOLECALCIFEROL
     Indication: PRODUCT USED FOR UNKNOWN INDICATION
     Route: 065
  3. EXJADE [Suspect]
     Active Substance: DEFERASIROX
     Indication: IRON OVERLOAD
     Dosage: 1000 MG, QD
     Route: 048
     Dates: start: 20130507
  4. MULTI VITAMIN [Concomitant]
     Active Substance: VITAMINS
     Indication: PRODUCT USED FOR UNKNOWN INDICATION
     Route: 065
  5. CALCIUM [Concomitant]
     Active Substance: CALCIUM
     Indication: PRODUCT USED FOR UNKNOWN INDICATION
     Route: 065

REACTIONS (13)
  - Dyspepsia [Unknown]
  - Escherichia urinary tract infection [Unknown]
  - Chromaturia [Unknown]
  - Blood potassium decreased [Unknown]
  - Fluid retention [Unknown]
  - Oedema peripheral [Recovering/Resolving]
  - Face oedema [Unknown]
  - Urinary tract infection bacterial [Unknown]
  - Urine odour abnormal [Not Recovered/Not Resolved]
  - Peripheral swelling [Unknown]
  - Rhinorrhoea [Unknown]
  - Pollakiuria [Unknown]
  - Fatigue [Unknown]
